FAERS Safety Report 8368270-5 (Version None)
Quarter: 2012Q2

REPORT INFORMATION
  Report Type: 
  Country: None (occurrence: None)
  Receive Date: 20120517
  Receipt Date: 20120514
  Transmission Date: 20120825
  Serious: Yes (Death, Hospitalization, Other)
  Sender: FDA-Public Use
  Company Number: US-AMGEN-USASP2012010096

PATIENT
  Age: 73 Year
  Sex: Female
  Weight: 53.968 kg

DRUGS (2)
  1. PROLIA [Suspect]
     Indication: OSTEOPOROSIS POSTMENOPAUSAL
     Dosage: 60 MG, Q6MO
     Dates: start: 20110217, end: 20110722
  2. PREDNISONE [Concomitant]
     Indication: CONNECTIVE TISSUE DISORDER
     Dosage: 10 MG, UNK

REACTIONS (15)
  - PULMONARY FIBROSIS [None]
  - DISABILITY [None]
  - OEDEMA [None]
  - INTERSTITIAL LUNG DISEASE [None]
  - PNEUMONIA [None]
  - VENOUS INSUFFICIENCY [None]
  - CARDIAC FAILURE [None]
  - RESPIRATORY FAILURE [None]
  - CELLULITIS [None]
  - BLOOD PRESSURE INCREASED [None]
  - RASH [None]
  - PULMONARY HYPERTENSION [None]
  - SEPSIS [None]
  - SKIN ULCER [None]
  - PRURITUS [None]
